FAERS Safety Report 4862824-6 (Version None)
Quarter: 2005Q4

REPORT INFORMATION
  Report Type: 
  Country: None (occurrence: None)
  Receive Date: 20051221
  Receipt Date: 20051209
  Transmission Date: 20060501
  Serious: Yes (Other)
  Sender: FDA-Public Use
  Company Number: PHBS2005BR18321

PATIENT
  Age: 47 Year
  Sex: Male
  Weight: 112 kg

DRUGS (1)
  1. VOLTAREN [Suspect]
     Indication: BACK PAIN
     Dosage: 75 MG, ONCE/SINGLE
     Route: 030
     Dates: start: 20051205, end: 20051205

REACTIONS (2)
  - PAIN IN EXTREMITY [None]
  - WALKING DISABILITY [None]
